FAERS Safety Report 19648148 (Version 1)
Quarter: 2021Q3

REPORT INFORMATION
  Report Type: Spontaneous
  Country: CA (occurrence: CA)
  Receive Date: 20210802
  Receipt Date: 20210802
  Transmission Date: 20211014
  Serious: Yes (Life-Threatening, Hospitalization, Disabling, Other)
  Sender: FDA-Public Use
  Company Number: CA-BAYER-2021-183604

PATIENT
  Age: 37 Year
  Sex: Female

DRUGS (1)
  1. MIRENA [Suspect]
     Active Substance: LEVONORGESTREL
     Dosage: 20?G PER DAY, CONTINUOUSLY
     Route: 015

REACTIONS (8)
  - Irritability [None]
  - Emotional distress [None]
  - Euphoric mood [None]
  - Psychotic disorder [None]
  - Suicidal ideation [None]
  - Mood altered [None]
  - Frustration tolerance decreased [None]
  - Impaired work ability [None]
